FAERS Safety Report 9898395 (Version 1)
Quarter: 2014Q1

REPORT INFORMATION
  Report Type: Spontaneous
  Country: CA (occurrence: CA)
  Receive Date: 20140214
  Receipt Date: 20140214
  Transmission Date: 20141002
  Serious: No
  Sender: FDA-Public Use
  Company Number: CA-009507513-1402CAN005707

PATIENT
  Sex: Male

DRUGS (3)
  1. SINEMET [Suspect]
     Route: 048
  2. EFFEXOR [Suspect]
     Route: 065
  3. ZOLOFT [Suspect]
     Dosage: UNK
     Route: 065

REACTIONS (1)
  - Impaired driving ability [Unknown]
